FAERS Safety Report 12375403 (Version 1)
Quarter: 2016Q2

REPORT INFORMATION
  Report Type: Spontaneous
  Country: US (occurrence: US)
  Receive Date: 20160517
  Receipt Date: 20160517
  Transmission Date: 20160815
  Serious: No
  Sender: FDA-Public Use
  Company Number: US-VIIV HEALTHCARE LIMITED-US2016063835

PATIENT
  Age: 62 Year
  Sex: Female

DRUGS (5)
  1. TRIUMEQ [Suspect]
     Active Substance: ABACAVIR SULFATE\DOLUTEGRAVIR SODIUM\LAMIVUDINE
     Indication: HIV INFECTION
     Dosage: 600 MG, QD
     Dates: start: 201510
  2. CRESTOR [Concomitant]
     Active Substance: ROSUVASTATIN CALCIUM
  3. CEFDINIR. [Concomitant]
     Active Substance: CEFDINIR
  4. CARVEDILOL. [Concomitant]
     Active Substance: CARVEDILOL
  5. ACEON [Concomitant]
     Active Substance: PERINDOPRIL ERBUMINE

REACTIONS (6)
  - Night sweats [Recovering/Resolving]
  - Pyrexia [Recovering/Resolving]
  - Weight decreased [Recovering/Resolving]
  - Thyroid disorder [Unknown]
  - Fatigue [Recovering/Resolving]
  - Glycosylated haemoglobin increased [Unknown]

NARRATIVE: CASE EVENT DATE: 201603
